FAERS Safety Report 8454653-1 (Version None)
Quarter: 2012Q2

REPORT INFORMATION
  Report Type: 
  Country: None (occurrence: None)
  Receive Date: 20120621
  Receipt Date: 20120608
  Transmission Date: 20120825
  Serious: Yes (Other)
  Sender: FDA-Public Use
  Company Number: AU-BRISTOL-MYERS SQUIBB COMPANY-16674095

PATIENT
  Age: 81 Year
  Sex: Female
  Weight: 50 kg

DRUGS (15)
  1. ORENCIA [Suspect]
     Indication: RHEUMATOID ARTHRITIS
     Route: 042
     Dates: start: 20120402
  2. ACETAMINOPHEN [Concomitant]
  3. FERROUS SULFATE TAB [Concomitant]
  4. PREDNISONE TAB [Concomitant]
  5. PLAQUENIL [Concomitant]
  6. VITAMIN [Concomitant]
  7. VOLTAREN [Concomitant]
  8. AMIODARONE HYDROCHLORIDE [Concomitant]
  9. LERCANIDIPINE [Concomitant]
  10. ACTONEL [Concomitant]
  11. LEVOTHYROXINE SODIUM [Concomitant]
  12. VENTOLIN [Concomitant]
  13. LYRICA [Concomitant]
  14. OXYCODONE HCL [Concomitant]
  15. CALCIUM CARBONATE [Concomitant]

REACTIONS (1)
  - CARDIAC DISORDER [None]
